APPROVED DRUG PRODUCT: TROPICAMIDE
Active Ingredient: TROPICAMIDE
Strength: 1%
Dosage Form/Route: SOLUTION/DROPS;OPHTHALMIC
Application: A088447 | Product #001
Applicant: EPIC PHARMA LLC
Approved: Aug 28, 1985 | RLD: No | RS: No | Type: DISCN